FAERS Safety Report 5661655-7 (Version None)
Quarter: 2008Q1

REPORT INFORMATION
  Report Type: 
  Country: None (occurrence: None)
  Receive Date: 20080312
  Receipt Date: 20080305
  Transmission Date: 20080703
  Serious: Yes (Other)
  Sender: FDA-Public Use
  Company Number: AU-WYE-G01207908

PATIENT
  Age: 61 Year
  Sex: Female
  Weight: 60 kg

DRUGS (5)
  1. EFFEXOR XR [Suspect]
     Indication: OBSESSIVE-COMPULSIVE DISORDER
     Route: 048
     Dates: start: 20061210, end: 20080101
  2. EFFEXOR XR [Suspect]
     Indication: MAJOR DEPRESSION
     Route: 048
     Dates: start: 20080101, end: 20080228
  3. EFFEXOR XR [Suspect]
     Dosage: UNKNOWN
     Route: 048
     Dates: start: 20080229
  4. ALPRAZOLAM [Concomitant]
     Indication: ANXIETY
     Dosage: 4 MG DAILY
     Route: 048
  5. MIRTAZAPINE [Concomitant]
     Indication: MAJOR DEPRESSION
     Dosage: 45 MG NOCTE
     Route: 048
     Dates: start: 20060801

REACTIONS (1)
  - IRRITABILITY [None]
